FAERS Safety Report 4902711-8 (Version None)
Quarter: 2006Q1

REPORT INFORMATION
  Report Type: 
  Country: None (occurrence: None)
  Receive Date: 20060207
  Receipt Date: 20060112
  Transmission Date: 20060701
  Serious: Yes (Hospitalization)
  Sender: FDA-Public Use
  Company Number: US-AMGEN-US164763

PATIENT
  Sex: Female

DRUGS (2)
  1. PROCRIT [Suspect]
     Indication: RENAL FAILURE CHRONIC
     Route: 058
     Dates: start: 20050804
  2. AZATHIOPRINE [Concomitant]
     Dates: start: 19950331, end: 20050915

REACTIONS (3)
  - ANAEMIA [None]
  - GASTRITIS [None]
  - TREATMENT NONCOMPLIANCE [None]
